FAERS Safety Report 17951729 (Version 1)
Quarter: 2020Q2

REPORT INFORMATION
  Report Type: Spontaneous
  Country: US (occurrence: US)
  Receive Date: 20200626
  Receipt Date: 20200626
  Transmission Date: 20200714
  Serious: No
  Sender: FDA-Public Use
  Company Number: US-TEVA-2020-US-1792268

PATIENT
  Sex: Female

DRUGS (1)
  1. FLUTICASONE PROPIONATE / SALMETEROL XINOFOATE TEVA [Suspect]
     Active Substance: FLUTICASONE PROPIONATE\SALMETEROL XINAFOATE
     Indication: ASTHMA
     Dosage: FORM OF ADMIN: INHALATION, 232 MCG / 14 MCG
     Route: 065
     Dates: start: 20200617

REACTIONS (4)
  - Drug ineffective [Unknown]
  - Product taste abnormal [Unknown]
  - Cough [Not Recovered/Not Resolved]
  - Product odour abnormal [Unknown]
